FAERS Safety Report 4427690-1 (Version None)
Quarter: 2004Q3

REPORT INFORMATION
  Report Type: 
  Country: None (occurrence: None)
  Receive Date: 20040816
  Receipt Date: 20040816
  Transmission Date: 20050211
  Serious: Yes (Life-Threatening, Other)
  Sender: FDA-Public Use
  Company Number: None

PATIENT
  Sex: Male
  Weight: 40.8237 kg

DRUGS (1)
  1. ADVAIR DISKUS 100/50 [Suspect]
     Indication: ASTHMA
     Dosage: 2 PUFFS DAILY RESPIRATORY
     Route: 055
     Dates: start: 20030817, end: 20040710

REACTIONS (7)
  - ASTHMA [None]
  - DRUG EFFECT DECREASED [None]
  - FACE OEDEMA [None]
  - MYALGIA [None]
  - PAIN IN EXTREMITY [None]
  - PEAK EXPIRATORY FLOW RATE DECREASED [None]
  - WEIGHT INCREASED [None]
